FAERS Safety Report 6072853-5 (Version None)
Quarter: 2009Q1

REPORT INFORMATION
  Report Type: 
  Country: None (occurrence: None)
  Receive Date: 20090205
  Receipt Date: 20081008
  Transmission Date: 20090719
  Serious: Yes (Other)
  Sender: FDA-Public Use
  Company Number: 2008019100

PATIENT
  Age: 15 Year
  Sex: Male

DRUGS (1)
  1. TARTAR CONTROL LISTERINE MOUTHWASH (MENTHOL, METHYL SALICYLATE, EUCALY [Suspect]
     Dosage: ONCE, ORAL
     Route: 048
     Dates: start: 20080719, end: 20080719

REACTIONS (2)
  - APHTHOUS STOMATITIS [None]
  - EATING DISORDER [None]
